FAERS Safety Report 4746375-5 (Version None)
Quarter: 2005Q3

REPORT INFORMATION
  Report Type: 
  Country: None (occurrence: None)
  Receive Date: 20050815
  Receipt Date: 20050805
  Transmission Date: 20060218
  Serious: Yes (Other)
  Sender: FDA-Public Use
  Company Number: 2005-08-0296

PATIENT
  Age: 55 Year
  Sex: Female

DRUGS (3)
  1. TEMODAL [Suspect]
     Indication: EPENDYMOMA
     Dosage: SEE IMAGE
     Route: 048
     Dates: start: 20050616, end: 20050721
  2. RADIATION THERAPY [Concomitant]
  3. ANTIHYPERTENSIVE AGENT (NOS) [Concomitant]

REACTIONS (3)
  - JAUNDICE [None]
  - LIVER FUNCTION TEST ABNORMAL [None]
  - RASH PAPULAR [None]
